FAERS Safety Report 5601247-9 (Version None)
Quarter: 2008Q1

REPORT INFORMATION
  Report Type: 
  Country: None (occurrence: None)
  Receive Date: 20080124
  Receipt Date: 20080118
  Transmission Date: 20080703
  Serious: Yes (Death, Congenital Anomaly)
  Sender: FDA-Public Use
  Company Number: A0629424A

PATIENT
  Sex: Male
  Weight: 1.4 kg

DRUGS (6)
  1. PAXIL CR [Suspect]
     Indication: DEPRESSION
     Dosage: 37.5MG PER DAY
     Dates: start: 20050901, end: 20060112
  2. ORTHO TRI-CYCLEN [Concomitant]
     Dates: start: 20050405, end: 20051031
  3. ANAPROX [Concomitant]
     Dates: end: 20051201
  4. TOPAMAX [Concomitant]
     Dates: end: 20051201
  5. CELEXA [Concomitant]
     Dates: start: 20060112
  6. INFLUENZA VACCINE [Concomitant]
     Indication: PROPHYLAXIS
     Dates: start: 20060128, end: 20060128

REACTIONS (14)
  - ASCITES [None]
  - CARDIOMEGALY [None]
  - DRUG EXPOSURE DURING PREGNANCY [None]
  - FALLOT'S TETRALOGY [None]
  - HEART DISEASE CONGENITAL [None]
  - HYDROPS FOETALIS [None]
  - INTRA-UTERINE DEATH [None]
  - LOCALISED OEDEMA [None]
  - PERICARDIAL EFFUSION [None]
  - PLACENTAL DISORDER [None]
  - PLEURAL EFFUSION [None]
  - SKIN OEDEMA [None]
  - STILLBIRTH [None]
  - TRICUSPID VALVE INCOMPETENCE [None]
